FAERS Safety Report 6030989-9 (Version None)
Quarter: 2009Q1

REPORT INFORMATION
  Report Type: 
  Country: None (occurrence: None)
  Receive Date: 20090106
  Receipt Date: 20090106
  Transmission Date: 20090719
  Serious: Yes (Life-Threatening, Hospitalization)
  Sender: FDA-Public Use
  Company Number: None

PATIENT
  Age: 58 Year
  Sex: Female
  Weight: 73.9363 kg

DRUGS (4)
  1. PRILOSEC OTC [Suspect]
     Indication: GASTROOESOPHAGEAL REFLUX DISEASE
     Dosage: 1 TABLET 1 TO 2 X DAILY PO 1 +1/2 WEEKS APROX.
     Route: 048
  2. PRILOSEC OTC [Suspect]
     Indication: HERNIA
     Dosage: 1 TABLET 1 TO 2 X DAILY PO 1 +1/2 WEEKS APROX.
     Route: 048
  3. NEXIUM [Suspect]
     Indication: GASTROOESOPHAGEAL REFLUX DISEASE
     Dosage: 1 CAPSULE 2 X DAILY PO 5 OR 6 DAYS APROX.
     Route: 048
  4. NEXIUM [Suspect]
     Indication: HERNIA
     Dosage: 1 CAPSULE 2 X DAILY PO 5 OR 6 DAYS APROX.
     Route: 048

REACTIONS (5)
  - EYE PRURITUS [None]
  - FOOD ALLERGY [None]
  - RASH [None]
  - RASH PRURITIC [None]
  - THROAT TIGHTNESS [None]
